FAERS Safety Report 4718390-9 (Version None)
Quarter: 2005Q3

REPORT INFORMATION
  Report Type: 
  Country: None (occurrence: None)
  Receive Date: 20050719
  Receipt Date: 20050516
  Transmission Date: 20060218
  Serious: Yes (Hospitalization)
  Sender: FDA-Public Use
  Company Number: 2005076179

PATIENT
  Age: 80 Year
  Sex: Female
  Weight: 63.5036 kg

DRUGS (3)
  1. CELEBREX [Suspect]
     Indication: ARTHRITIS
     Dosage: 200 MG (200 MG, 1 IN 1 D), ORAL
     Route: 048
  2. SYNTHROID [Concomitant]
  3. LOTREL [Concomitant]

REACTIONS (4)
  - DIZZINESS [None]
  - LIPOMA [None]
  - PAIN [None]
  - THROMBOSIS [None]
